FAERS Safety Report 9082449 (Version 1)
Quarter: 2013Q1

REPORT INFORMATION
  Report Type: Report from Study
  Country: US (occurrence: US)
  Receive Date: 20130130
  Receipt Date: 20130130
  Transmission Date: 20140127
  Serious: No
  Sender: FDA-Public Use
  Company Number: US-ABBOTT-12P-163-0956311-00

PATIENT
  Age: 53 Year
  Sex: Female

DRUGS (12)
  1. HUMIRA 40 MG/0.8 ML PEN [Suspect]
     Indication: COLITIS ULCERATIVE
     Dates: start: 20120416
  2. LIALDA [Concomitant]
     Indication: COLITIS
     Dosage: 2 TABLETS DAILY
  3. KCL [Concomitant]
     Indication: PRODUCT USED FOR UNKNOWN INDICATION
     Dosage: 2 DAILY
     Route: 048
  4. DIOVAN/HCTZ [Concomitant]
     Indication: HYPERTENSION
     Dosage: 160/25 DAILY
     Route: 048
  5. TOVIAZ [Concomitant]
     Indication: HYPERTONIC BLADDER
     Dosage: 8MG DAILY
     Route: 048
  6. CRESTOR [Concomitant]
     Indication: BLOOD CHOLESTEROL INCREASED
     Dosage: 20MG DAILY
     Route: 048
  7. CELEBREX [Concomitant]
     Indication: MYALGIA
     Dosage: 1-2 AS NEEDED DAILY
  8. FISH OIL [Concomitant]
     Indication: VITAMIN SUPPLEMENTATION
     Dosage: 1200MG DAILY
     Route: 048
  9. REQUIP [Concomitant]
     Indication: RESTLESS LEGS SYNDROME
  10. ACETAMINOPHEN W/BUTALBITAL [Concomitant]
     Indication: MIGRAINE
     Route: 048
  11. UNKNOWN VAGINAL SUPPOSITORY [Concomitant]
     Indication: HORMONE REPLACEMENT THERAPY
     Route: 067
  12. XANAX [Concomitant]
     Indication: PRODUCT USED FOR UNKNOWN INDICATION

REACTIONS (5)
  - Injection site streaking [Recovered/Resolved]
  - Arthralgia [Not Recovered/Not Resolved]
  - Arthralgia [Not Recovered/Not Resolved]
  - Contusion [Not Recovered/Not Resolved]
  - Dermatitis contact [Unknown]
